FAERS Safety Report 18130343 (Version 1)
Quarter: 2020Q3

REPORT INFORMATION
  Report Type: Spontaneous
  Country: JP (occurrence: JP)
  Receive Date: 20200810
  Receipt Date: 20200810
  Transmission Date: 20201103
  Serious: Yes (Other)
  Sender: FDA-Public Use
  Company Number: JP-AMNEAL PHARMACEUTICALS-2020-AMRX-02343

PATIENT
  Age: 72 Year
  Sex: Male

DRUGS (12)
  1. PHENYTOIN SODIUM. [Suspect]
     Active Substance: PHENYTOIN SODIUM
     Indication: EPILEPSY
     Dosage: UNK
     Route: 065
  2. METHYLPREDNISOLONE SODIUM SUCCINATE. [Interacting]
     Active Substance: METHYLPREDNISOLONE SODIUM SUCCINATE
     Indication: PEMPHIGOID
     Dosage: 500 MILLIGRAM, QD FOR 3 DAYS
     Route: 042
  3. PREDNISOLONE. [Interacting]
     Active Substance: PREDNISOLONE
     Dosage: 35 MILLIGRAM, QD
     Route: 048
  4. PHENYTOIN SODIUM. [Interacting]
     Active Substance: PHENYTOIN SODIUM
     Indication: CEREBRAL PALSY
  5. DIVALPROEX SODIUM. [Interacting]
     Active Substance: DIVALPROEX SODIUM
     Indication: EPILEPSY
     Dosage: UNK
     Route: 065
  6. PREDNISOLONE. [Interacting]
     Active Substance: PREDNISOLONE
     Dosage: 45 MILLIGRAM, QD
     Route: 048
  7. PREDNISOLONE. [Interacting]
     Active Substance: PREDNISOLONE
     Indication: PEMPHIGOID
     Dosage: 50 MILLIGRAM, QD (1MG/KG/DAY)
     Route: 048
  8. DIVALPROEX SODIUM. [Interacting]
     Active Substance: DIVALPROEX SODIUM
     Indication: CEREBRAL PALSY
  9. METHYLPREDNISOLONE SODIUM SUCCINATE. [Interacting]
     Active Substance: METHYLPREDNISOLONE SODIUM SUCCINATE
     Dosage: 1 MILLIGRAM/KILOGRAM, 50MG
     Route: 048
  10. PREDNISOLONE. [Interacting]
     Active Substance: PREDNISOLONE
     Dosage: 40 MILLIGRAM, QD
     Route: 048
  11. PRIMIDONE. [Concomitant]
     Active Substance: PRIMIDONE
     Indication: EPILEPSY
     Dosage: UNK
     Route: 065
  12. PRIMIDONE. [Concomitant]
     Active Substance: PRIMIDONE
     Indication: CEREBRAL PALSY

REACTIONS (2)
  - Drug interaction [Unknown]
  - Pemphigoid [Recovered/Resolved]
